FAERS Safety Report 16858384 (Version 1)
Quarter: 2019Q3

REPORT INFORMATION
  Report Type: Spontaneous
  Country: US (occurrence: US)
  Receive Date: 20190926
  Receipt Date: 20190926
  Transmission Date: 20191005
  Serious: No
  Sender: FDA-Public Use
  Company Number: US-BRISTOL-MYERS SQUIBB COMPANY-BMS-2019-093457

PATIENT
  Sex: Male

DRUGS (1)
  1. ORENCIA [Suspect]
     Active Substance: ABATACEPT
     Indication: EVANS SYNDROME
     Dosage: 125 MILLIGRAM, QWK
     Route: 058
     Dates: start: 20190626

REACTIONS (2)
  - Intentional product use issue [Unknown]
  - Rhinorrhoea [Unknown]
